FAERS Safety Report 6155945-1 (Version None)
Quarter: 2009Q2

REPORT INFORMATION
  Report Type: 
  Country: None (occurrence: None)
  Receive Date: 20090415
  Receipt Date: 20090409
  Transmission Date: 20091009
  Serious: Yes (Other)
  Sender: FDA-Public Use
  Company Number: DE-GENENTECH-280969

PATIENT

DRUGS (5)
  1. RITUXIMAB [Suspect]
     Indication: B-CELL LYMPHOMA
     Dosage: 375 MG/M2, ^DAY 1^
     Route: 042
  2. MITOXANTRONE [Suspect]
     Indication: B-CELL LYMPHOMA
     Dosage: 8 MG/M2, ^DAYS 3 AND 4^
     Route: 042
  3. CHLORAMBUCIL [Suspect]
     Indication: B-CELL LYMPHOMA
     Dosage: 3 X 3 MG/M2, ^DAYS 3-7^
     Route: 048
  4. PREDNISOLONE [Suspect]
     Indication: B-CELL LYMPHOMA
     Dosage: 25 MG/M2, ^DAYS 3-7^
     Route: 048
  5. INTERFERON ALFA-2A [Suspect]
     Indication: B-CELL LYMPHOMA
     Dosage: 4.5 MIU, 3/WEEK
     Route: 065

REACTIONS (1)
  - DYSPEPSIA [None]
